FAERS Safety Report 4842038-6 (Version None)
Quarter: 2005Q4

REPORT INFORMATION
  Report Type: 
  Country: None (occurrence: None)
  Receive Date: 20051130
  Receipt Date: 20051118
  Transmission Date: 20060501
  Serious: Yes (Hospitalization)
  Sender: FDA-Public Use
  Company Number: SE-JNJFOC-20051105386

PATIENT
  Sex: Female

DRUGS (3)
  1. IPREN [Suspect]
     Route: 048
  2. DULCOLAX [Suspect]
     Route: 048
  3. ALVEDON [Suspect]
     Route: 048

REACTIONS (6)
  - ASTHENIA [None]
  - DEPRESSION [None]
  - DYSPNOEA [None]
  - FATIGUE [None]
  - GENERALISED OEDEMA [None]
  - WEIGHT DECREASED [None]
